FAERS Safety Report 23567794 (Version 2)
Quarter: 2024Q2

REPORT INFORMATION
  Report Type: Spontaneous
  Country: US (occurrence: US)
  Receive Date: 20240226
  Receipt Date: 20240402
  Transmission Date: 20240715
  Serious: No
  Sender: FDA-Public Use
  Company Number: US-SA-SAC20240221000373

PATIENT
  Age: 54 Year
  Sex: Female
  Weight: 124.73 kg

DRUGS (3)
  1. DUPIXENT [Suspect]
     Active Substance: DUPILUMAB
     Indication: Asthma
     Dosage: 300 MG QOW
     Route: 058
  2. CARDIZEM LA [Concomitant]
     Active Substance: DILTIAZEM HYDROCHLORIDE
  3. HYDROCHLOROTHIAZIDE [Concomitant]
     Active Substance: HYDROCHLOROTHIAZIDE

REACTIONS (12)
  - Epicondylitis [Unknown]
  - Hypertension [Unknown]
  - Peripheral swelling [Unknown]
  - Pain [Unknown]
  - Weight increased [Unknown]
  - Gait disturbance [Unknown]
  - Fluid retention [Unknown]
  - Pain in extremity [Unknown]
  - Vision blurred [Unknown]
  - Condition aggravated [Unknown]
  - Arthralgia [Unknown]
  - Adverse drug reaction [Unknown]

NARRATIVE: CASE EVENT DATE: 20220101
